FAERS Safety Report 13817559 (Version 2)
Quarter: 2017Q3

REPORT INFORMATION
  Report Type: Spontaneous
  Country: JP (occurrence: JP)
  Receive Date: 20170731
  Receipt Date: 20170918
  Transmission Date: 20171127
  Serious: Yes (Hospitalization, Other)
  Sender: FDA-Public Use
  Company Number: JP-ABBVIE-17P-087-2054951-00

PATIENT
  Age: 82 Year
  Sex: Male
  Weight: 46.1 kg

DRUGS (3)
  1. LEUPRORELIN ACETATE [Suspect]
     Active Substance: LEUPROLIDE ACETATE
     Indication: PROSTATE CANCER
     Dosage: 11.25 MG, Q3MONTHS
     Route: 058
     Dates: start: 20150919, end: 20170501
  2. BICALUTAMIDE. [Suspect]
     Active Substance: BICALUTAMIDE
     Indication: PROSTATE CANCER
     Dosage: 80 MG, QD
     Route: 048
     Dates: start: 20150911
  3. TAMSULOSIN HYDROCHLORIDE. [Concomitant]
     Active Substance: TAMSULOSIN HYDROCHLORIDE
     Indication: BENIGN PROSTATIC HYPERPLASIA
     Dosage: 0.2 MG, QD
     Route: 048
     Dates: start: 20150827

REACTIONS (1)
  - Interstitial lung disease [Not Recovered/Not Resolved]

NARRATIVE: CASE EVENT DATE: 20170715
